FAERS Safety Report 5694039-6 (Version None)
Quarter: 2008Q2

REPORT INFORMATION
  Report Type: 
  Country: None (occurrence: None)
  Receive Date: 20080403
  Receipt Date: 20080328
  Transmission Date: 20081010
  Serious: Yes (Other)
  Sender: FDA-Public Use
  Company Number: JP-MERCK-0803USA03890

PATIENT
  Age: 46 Year
  Sex: Male

DRUGS (2)
  1. PEPCID RPD [Suspect]
     Indication: GASTROENTERITIS
     Route: 048
     Dates: start: 20080223, end: 20080306
  2. PEPCID RPD [Suspect]
     Indication: GASTRITIS
     Route: 048
     Dates: start: 20080223, end: 20080306

REACTIONS (1)
  - ERYTHEMA MULTIFORME [None]
